FAERS Safety Report 8778913 (Version 2)
Quarter: 2013Q4

REPORT INFORMATION
  Report Type: Spontaneous
  Country: US (occurrence: US)
  Receive Date: 20120912
  Receipt Date: 20131111
  Transmission Date: 20140711
  Serious: No
  Sender: FDA-Public Use
  Company Number: US-ASTRAZENECA-2012SE65878

PATIENT
  Age: 50 Year
  Sex: Female
  Weight: 69.9 kg

DRUGS (2)
  1. SYMBICORT PMDI [Suspect]
     Indication: ASTHMA
     Dosage: 160/4.5 MCG ONE PUFF TWO TIMES A DAY
     Route: 055
     Dates: start: 2009
  2. ALBUTEROL [Concomitant]

REACTIONS (4)
  - Dyspnoea [Unknown]
  - Asthma [Unknown]
  - Multiple allergies [Unknown]
  - Intentional drug misuse [Unknown]
